FAERS Safety Report 7805487-X (Version None)
Quarter: 2011Q4

REPORT INFORMATION
  Report Type: 
  Country: None (occurrence: None)
  Receive Date: 20111010
  Receipt Date: 20110930
  Transmission Date: 20120403
  Serious: Yes (Hospitalization, Other)
  Sender: FDA-Public Use
  Company Number: PHEH2010US00462

PATIENT
  Sex: Male
  Weight: 108.84 kg

DRUGS (17)
  1. AVAPRO [Concomitant]
     Dosage: 150 MG, BID
     Route: 048
  2. BENADRYL [Concomitant]
     Indication: INSOMNIA
     Dosage: 25 MG, QH
     Route: 048
  3. PROPOFOL [Concomitant]
  4. SUNITINIB MALATE [Concomitant]
     Dosage: 25 MG, QD
  5. LOSARTAN POTASSIUM [Concomitant]
     Dosage: 100 MG, QD
  6. LEVOTHYROXINE SODIUM [Concomitant]
     Dosage: 0.1 MG, QD
     Route: 048
  7. MORPHINE SULFATE [Concomitant]
     Dosage: 30 MG, 2 EVERY 8 HOURS
  8. AREDIA [Suspect]
  9. DROPERIDOL [Concomitant]
  10. ZOMETA [Suspect]
  11. FENTANYL [Concomitant]
  12. MAGNESIUM CITRATE [Concomitant]
  13. TYLENOL-500 [Concomitant]
     Indication: PYREXIA
  14. TYLENOL-500 [Concomitant]
     Indication: HEADACHE
  15. CLONIDINE [Concomitant]
     Dosage: 0.2 MG, QD
  16. HYDROCHLOROTHIAZIDE [Concomitant]
     Dosage: 25 MG, QD
  17. CLINDAMYCIN [Concomitant]
     Dosage: 150 MG, QD

REACTIONS (16)
  - ADRENAL MASS [None]
  - PHYSICAL DISABILITY [None]
  - GENERAL PHYSICAL HEALTH DETERIORATION [None]
  - PAIN [None]
  - CONSTIPATION [None]
  - NEOPLASM PROGRESSION [None]
  - ANXIETY [None]
  - OSTEONECROSIS OF JAW [None]
  - URINARY RETENTION [None]
  - OSTEOMYELITIS [None]
  - PAPILLOMA VIRAL INFECTION [None]
  - URETHRAL OBSTRUCTION [None]
  - EXPOSED BONE IN JAW [None]
  - NEOPLASM MALIGNANT [None]
  - DECREASED INTEREST [None]
  - URETHRAL STENOSIS [None]
